FAERS Safety Report 20327246 (Version 13)
Quarter: 2023Q4

REPORT INFORMATION
  Report Type: Report from Study
  Country: US (occurrence: US)
  Receive Date: 20220112
  Receipt Date: 20231108
  Transmission Date: 20240110
  Serious: Yes (Other)
  Sender: FDA-Public Use
  Company Number: NVSC2022US005756

PATIENT
  Age: 59 Year
  Sex: Male

DRUGS (7)
  1. COSENTYX [Suspect]
     Active Substance: SECUKINUMAB
     Indication: Psoriasis
     Dosage: 150 MG, QW
     Route: 065
  2. COSENTYX [Suspect]
     Active Substance: SECUKINUMAB
     Indication: Psoriatic arthropathy
     Dosage: 150 MG, QMO
     Route: 058
     Dates: start: 202111
  3. COSENTYX [Suspect]
     Active Substance: SECUKINUMAB
     Dosage: 300 MG, QMO
     Route: 065
     Dates: start: 20211202
  4. COSENTYX [Suspect]
     Active Substance: SECUKINUMAB
     Dosage: 150 MG, QMO
     Route: 058
     Dates: start: 202201
  5. COSENTYX [Suspect]
     Active Substance: SECUKINUMAB
     Dosage: 300 MG, QMO
     Route: 058
  6. CORDRAN [Concomitant]
     Active Substance: FLURANDRENOLIDE
     Indication: Product used for unknown indication
     Dosage: UNK
     Route: 065
  7. CLOBETASOL PROPIONATE [Concomitant]
     Active Substance: CLOBETASOL PROPIONATE
     Indication: Product used for unknown indication
     Dosage: UNK
     Route: 065

REACTIONS (26)
  - Diabetes mellitus [Unknown]
  - Alopecia [Unknown]
  - Arthropathy [Unknown]
  - Back pain [Unknown]
  - Pain in extremity [Unknown]
  - Feeling abnormal [Unknown]
  - Arthritis [Unknown]
  - Fall [Unknown]
  - Arthralgia [Unknown]
  - Joint effusion [Unknown]
  - Tendonitis [Unknown]
  - Skin disorder [Unknown]
  - Gait disturbance [Unknown]
  - Spondylitis [Unknown]
  - Tremor [Unknown]
  - Nocturia [Unknown]
  - Blister [Unknown]
  - Fatigue [Unknown]
  - Product distribution issue [Unknown]
  - Rash macular [Unknown]
  - Insomnia [Unknown]
  - Pruritus [Unknown]
  - Psoriasis [Unknown]
  - Dry skin [Unknown]
  - Rash [Unknown]
  - Product storage error [Unknown]

NARRATIVE: CASE EVENT DATE: 20211101
